FAERS Safety Report 8179142-3 (Version None)
Quarter: 2012Q1

REPORT INFORMATION
  Report Type: 
  Country: None (occurrence: None)
  Receive Date: 20120302
  Receipt Date: 20120228
  Transmission Date: 20120608
  Serious: No
  Sender: FDA-Public Use
  Company Number: US-PFIZER INC-2012054962

PATIENT
  Sex: Female

DRUGS (1)
  1. CHANTIX [Suspect]
     Indication: SMOKING CESSATION THERAPY
     Dosage: UNK

REACTIONS (8)
  - FEAR [None]
  - ANXIETY [None]
  - NAUSEA [None]
  - STRESS [None]
  - CONSTIPATION [None]
  - ABNORMAL DREAMS [None]
  - INSOMNIA [None]
  - VOMITING [None]
